FAERS Safety Report 9684330 (Version 2)
Quarter: 2014Q2

REPORT INFORMATION
  Report Type: Spontaneous
  Country: IT (occurrence: IT)
  Receive Date: 20131112
  Receipt Date: 20140415
  Transmission Date: 20141212
  Serious: Yes (Hospitalization)
  Sender: FDA-Public Use
  Company Number: IT-ACTAVIS-2013-20276

PATIENT
  Age: 2 Year
  Sex: Female

DRUGS (2)
  1. REUTERIN [Concomitant]
     Indication: SUPPLEMENTATION THERAPY
     Dosage: UNK UNK, UNKNOWN
     Route: 048
     Dates: start: 20131015, end: 20131019
  2. PARACETAMOL  (UNKNOWN) [Suspect]
     Indication: PYREXIA
     Dosage: UNK UNK, UNKNOWN
     Route: 054
     Dates: start: 20131017, end: 20131017

REACTIONS (4)
  - Angioedema [Recovering/Resolving]
  - Joint swelling [Recovering/Resolving]
  - Pyrexia [Recovering/Resolving]
  - Vasculitis [Recovering/Resolving]
